FAERS Safety Report 18564910 (Version 1)
Quarter: 2020Q4

REPORT INFORMATION
  Report Type: Spontaneous
  Country: CA (occurrence: CA)
  Receive Date: 20201201
  Receipt Date: 20201201
  Transmission Date: 20210114
  Serious: Yes (Other)
  Sender: FDA-Public Use
  Company Number: CA-PFIZER INC-2020473055

PATIENT
  Sex: Male

DRUGS (1)
  1. ADVIL ARTHRITIS PAIN [Suspect]
     Active Substance: IBUPROFEN
     Dosage: UNK

REACTIONS (3)
  - Product size issue [Unknown]
  - Choking [Unknown]
  - Hypoacusis [Unknown]
